FAERS Safety Report 19481634 (Version 1)
Quarter: 2021Q3

REPORT INFORMATION
  Report Type: Spontaneous
  Country: US (occurrence: US)
  Receive Date: 20210701
  Receipt Date: 20210701
  Transmission Date: 20211014
  Serious: No
  Sender: FDA-Public Use
  Company Number: US-CADILA HEALTHCARE LIMITED-US-ZYDUS-052033

PATIENT
  Sex: Female

DRUGS (1)
  1. BUDESONIDE CAPSULE, COATED [Suspect]
     Active Substance: BUDESONIDE
     Route: 065

REACTIONS (1)
  - Diarrhoea [Unknown]
